FAERS Safety Report 17615181 (Version 1)
Quarter: 2020Q2

REPORT INFORMATION
  Report Type: Spontaneous
  Country: US (occurrence: US)
  Receive Date: 20200402
  Receipt Date: 20200402
  Transmission Date: 20200713
  Serious: Yes (Death, Hospitalization, Other)
  Sender: FDA-Public Use
  Company Number: US-PFIZER INC-2020135885

PATIENT
  Age: 66 Year
  Sex: Male
  Weight: 72.57 kg

DRUGS (1)
  1. VFEND [Suspect]
     Active Substance: VORICONAZOLE
     Dosage: 200 MG, 2X/DAY (ONE IN THE AM AND ONE IN THE PM)
     Dates: end: 202003

REACTIONS (2)
  - Cerebral haemorrhage [Fatal]
  - Leukaemia recurrent [Fatal]

NARRATIVE: CASE EVENT DATE: 20200310
